FAERS Safety Report 4518972-3 (Version None)
Quarter: 2004Q4

REPORT INFORMATION
  Report Type: 
  Country: None (occurrence: None)
  Receive Date: 20041203
  Receipt Date: 20041203
  Transmission Date: 20050328
  Serious: Yes (Other)
  Sender: FDA-Public Use
  Company Number: None

PATIENT
  Sex: Male
  Weight: 91.173 kg

DRUGS (2)
  1. ETOPOSIDE [Suspect]
     Indication: SMALL CELL LUNG CANCER STAGE UNSPECIFIED
     Dosage: 100/M2   X 9 DAYS  INTRAVENOUS
     Route: 042
     Dates: start: 19991220, end: 20000202
  2. RADIATION THERAPY [Suspect]
     Indication: SMALL CELL LUNG CANCER STAGE UNSPECIFIED
     Dosage: 7609 TOTAL DAILY INTRATUMOR
     Route: 036
     Dates: start: 19991220, end: 20000216

REACTIONS (1)
  - DIFFUSE LARGE B-CELL LYMPHOMA [None]
